FAERS Safety Report 5227604-0 (Version None)
Quarter: 2007Q1

REPORT INFORMATION
  Report Type: 
  Country: None (occurrence: None)
  Receive Date: 20070202
  Receipt Date: 20070123
  Transmission Date: 20070707
  Serious: Yes (Hospitalization, Congenital Anomaly)
  Sender: FDA-Public Use
  Company Number: HQWYE122101FEB07

PATIENT
  Sex: Male

DRUGS (5)
  1. AVLOCARDYL [Suspect]
     Indication: MITRAL VALVE PROLAPSE
     Route: 064
     Dates: start: 20060705, end: 20060722
  2. AVLOCARDYL [Suspect]
     Indication: ARRHYTHMIA
  3. ASPEGIC 1000 [Concomitant]
     Dosage: UNKNOWN
     Route: 064
     Dates: end: 20060722
  4. SOTALOL HYDROCHLORIDE [Suspect]
     Indication: MITRAL VALVE PROLAPSE
     Route: 064
     Dates: end: 20060705
  5. SOTALOL HYDROCHLORIDE [Suspect]
     Indication: ARRHYTHMIA

REACTIONS (7)
  - DRUG EXPOSURE DURING PREGNANCY [None]
  - FOETAL GROWTH RETARDATION [None]
  - HYPOGLYCAEMIA NEONATAL [None]
  - HYPOVENTILATION [None]
  - HYPOVENTILATION NEONATAL [None]
  - MENINGITIS ENTEROVIRAL [None]
  - NEONATAL DISORDER [None]
